FAERS Safety Report 15584760 (Version 3)
Quarter: 2018Q4

REPORT INFORMATION
  Report Type: Spontaneous
  Country: JP (occurrence: JP)
  Receive Date: 20181105
  Receipt Date: 20181228
  Transmission Date: 20190205
  Serious: Yes (Other)
  Sender: FDA-Public Use
  Company Number: JP-ROCHE-2211029

PATIENT
  Age: 72 Year
  Sex: Female

DRUGS (4)
  1. INFLIXIMAB [Concomitant]
     Active Substance: INFLIXIMAB
  2. ABATACEPT [Concomitant]
     Active Substance: ABATACEPT
  3. GOLIMUMAB [Concomitant]
     Active Substance: GOLIMUMAB
  4. ACTEMRA [Suspect]
     Active Substance: TOCILIZUMAB
     Indication: RHEUMATOID ARTHRITIS
     Route: 065

REACTIONS (2)
  - Tropical spastic paresis [Unknown]
  - Neuropathy peripheral [Unknown]
